FAERS Safety Report 19678586 (Version 1)
Quarter: 2021Q3

REPORT INFORMATION
  Report Type: Spontaneous
  Country: US (occurrence: US)
  Receive Date: 20210809
  Receipt Date: 20210809
  Transmission Date: 20211014
  Serious: Yes (Disabling)
  Sender: FDA-Public Use
  Company Number: None

PATIENT
  Age: 68 Year
  Sex: Female
  Weight: 72 kg

DRUGS (6)
  1. RECLAST [Suspect]
     Active Substance: ZOLEDRONIC ACID
     Indication: OSTEOPOROSIS
     Route: 042
     Dates: start: 20210720
  2. MULTI VITAMIN [Concomitant]
     Active Substance: VITAMINS
  3. CALCIUM W VITAMIN D [Concomitant]
  4. BAUSCH AND LOMB ARED EYE PILL [Concomitant]
  5. ROSUVASTATIN. [Concomitant]
     Active Substance: ROSUVASTATIN
  6. BABY ASPIRIN [Concomitant]
     Active Substance: ASPIRIN

REACTIONS (22)
  - Temperature regulation disorder [None]
  - Pain of skin [None]
  - Musculoskeletal stiffness [None]
  - Pain in extremity [None]
  - Grip strength decreased [None]
  - Skin mass [None]
  - Joint range of motion decreased [None]
  - Fatigue [None]
  - Tremor [None]
  - Peripheral swelling [None]
  - Hunger [None]
  - Rash [None]
  - Gait disturbance [None]
  - Feeling of body temperature change [None]
  - Nausea [None]
  - Back pain [None]
  - Influenza like illness [None]
  - Insomnia [None]
  - Arthralgia [None]
  - Pain [None]
  - Herpes zoster [None]
  - Hordeolum [None]

NARRATIVE: CASE EVENT DATE: 20010721
